FAERS Safety Report 19779910 (Version 1)
Quarter: 2021Q3

REPORT INFORMATION
  Report Type: Report from Study
  Country: None (occurrence: PR)
  Receive Date: 20210902
  Receipt Date: 20210902
  Transmission Date: 20211014
  Serious: Yes (Hospitalization)
  Sender: FDA-Public Use
  Company Number: PR-ABBVIE-21K-131-4061600-00

PATIENT
  Sex: Male
  Weight: 77.18 kg

DRUGS (6)
  1. HUMIRA [Suspect]
     Active Substance: ADALIMUMAB
     Indication: CROHN^S DISEASE
     Route: 058
     Dates: start: 2019, end: 202102
  2. LEVOTHYROXINE. [Concomitant]
     Active Substance: LEVOTHYROXINE
     Indication: THYROID DISORDER
     Route: 048
     Dates: start: 2019
  3. PREDNISONE. [Concomitant]
     Active Substance: PREDNISONE
     Indication: LIVER DISORDER
     Route: 048
     Dates: start: 2021
  4. TOZINAMERAN. [Concomitant]
     Active Substance: TOZINAMERAN
     Dosage: 2ND DOSE
     Route: 030
     Dates: start: 20210506, end: 20210506
  5. IMURAN [Concomitant]
     Active Substance: AZATHIOPRINE
     Indication: LIVER DISORDER
     Route: 048
     Dates: start: 2021
  6. TOZINAMERAN. [Concomitant]
     Active Substance: TOZINAMERAN
     Indication: COVID-19 IMMUNISATION
     Dosage: 1ST DOSE
     Route: 030
     Dates: start: 20210415, end: 20210415

REACTIONS (8)
  - Constipation [Recovered/Resolved]
  - Skin disorder [Recovered/Resolved]
  - Erythema [Recovered/Resolved]
  - Gastric pH decreased [Recovered/Resolved]
  - Pruritus [Recovered/Resolved]
  - Gastrointestinal inflammation [Recovered/Resolved]
  - Insomnia [Recovered/Resolved]
  - Abdominal pain upper [Recovered/Resolved]

NARRATIVE: CASE EVENT DATE: 2021
